FAERS Safety Report 16807826 (Version 7)
Quarter: 2021Q4

REPORT INFORMATION
  Report Type: Report from Study
  Country: IN (occurrence: IN)
  Receive Date: 20190915
  Receipt Date: 20211019
  Transmission Date: 20220303
  Serious: Yes (Other)
  Sender: FDA-Public Use
  Company Number: PHHY2018IN151850

PATIENT
  Age: 54 Year
  Sex: Male

DRUGS (17)
  1. SECUKINUMAB [Suspect]
     Active Substance: SECUKINUMAB
     Indication: Ankylosing spondylitis
     Dosage: 150 MG, QMO (FIRST DOSE)
     Route: 058
     Dates: start: 20180206
  2. SECUKINUMAB [Suspect]
     Active Substance: SECUKINUMAB
     Dosage: 150 MG, QMO (8TH DOSE)
     Route: 058
     Dates: start: 20180924
  3. SECUKINUMAB [Suspect]
     Active Substance: SECUKINUMAB
     Dosage: 150 MG, QMO
     Route: 058
     Dates: start: 20181103
  4. SECUKINUMAB [Suspect]
     Active Substance: SECUKINUMAB
     Dosage: 150 MG, QMO (13TH DOSE)
     Route: 058
     Dates: start: 20181215
  5. SECUKINUMAB [Suspect]
     Active Substance: SECUKINUMAB
     Dosage: 150 MG, UNKNOWN (ONCE IN 2 MONTHS)
     Route: 058
     Dates: start: 20190703
  6. SECUKINUMAB [Suspect]
     Active Substance: SECUKINUMAB
     Dosage: 150 MG, UNKNOWN
     Route: 058
     Dates: start: 20191115
  7. SECUKINUMAB [Suspect]
     Active Substance: SECUKINUMAB
     Dosage: 150 MG, UNKNOWN
     Route: 058
     Dates: start: 20200220
  8. SECUKINUMAB [Suspect]
     Active Substance: SECUKINUMAB
     Dosage: 300 MG, (ONCE IN 15 DAYS FOR TWO DAYS, THEN ONCE IN Q4W FOR 2 DOSES AND THEN ONCE IN 6 WEEKS FOR 5 D
     Route: 058
     Dates: start: 20201030
  9. SECUKINUMAB [Suspect]
     Active Substance: SECUKINUMAB
     Dosage: 150 MG (ONCE IN 6 WEEKS)
     Route: 058
     Dates: start: 20210807
  10. SECUKINUMAB [Suspect]
     Active Substance: SECUKINUMAB
     Dosage: 150 MG
     Route: 058
     Dates: start: 20210824
  11. METHOTREXATE SODIUM [Concomitant]
     Active Substance: METHOTREXATE SODIUM
     Indication: Product used for unknown indication
     Dosage: UNK, BIW
     Route: 065
  12. CALCIUM [Concomitant]
     Active Substance: CALCIUM
     Indication: Hypertension
     Dosage: UNK
     Route: 065
  13. MEXT [Concomitant]
     Indication: Product used for unknown indication
     Dosage: UNK
     Route: 065
  14. FOLIC ACID [Concomitant]
     Active Substance: FOLIC ACID
     Indication: Product used for unknown indication
     Dosage: UNK
     Route: 065
  15. FOLVITE [Concomitant]
     Active Substance: FOLIC ACID
     Indication: Product used for unknown indication
     Dosage: UNK
     Route: 065
  16. SANDOCAL [Concomitant]
     Indication: Product used for unknown indication
     Dosage: UNK
     Route: 065
  17. LEVOTHYROXINE [Concomitant]
     Active Substance: LEVOTHYROXINE
     Indication: Thyroid disorder
     Dosage: UNK
     Route: 065

REACTIONS (11)
  - Gastric ulcer [Unknown]
  - Gastric disorder [Not Recovered/Not Resolved]
  - Musculoskeletal stiffness [Not Recovered/Not Resolved]
  - Arthralgia [Recovering/Resolving]
  - Pain [Not Recovered/Not Resolved]
  - Discomfort [Recovered/Resolved]
  - Back pain [Unknown]
  - Pain in extremity [Unknown]
  - Flatulence [Not Recovered/Not Resolved]
  - Inappropriate schedule of product administration [Unknown]
  - Drug ineffective [Unknown]

NARRATIVE: CASE EVENT DATE: 20181001
